FAERS Safety Report 6401985-4 (Version None)
Quarter: 2009Q4

REPORT INFORMATION
  Report Type: 
  Country: None (occurrence: None)
  Receive Date: 20091015
  Receipt Date: 20091009
  Transmission Date: 20100525
  Serious: Yes (Hospitalization)
  Sender: FDA-Public Use
  Company Number: B0597925A

PATIENT
  Sex: Male

DRUGS (9)
  1. ARTIST [Suspect]
     Indication: HYPERTENSION
     Dosage: 2.5MG PER DAY
     Route: 048
     Dates: start: 20090618, end: 20090807
  2. PLAVIX [Suspect]
     Indication: CEREBRAL INFARCTION
     Route: 065
     Dates: start: 20090630, end: 20090807
  3. MEVAN [Suspect]
     Dosage: 5MG PER DAY
     Route: 048
     Dates: end: 20090707
  4. PLETAL [Suspect]
     Indication: CEREBRAL INFARCTION
     Dosage: 200MG TWICE PER DAY
     Route: 048
     Dates: start: 20090610, end: 20090802
  5. CILOSTAZOL [Suspect]
     Indication: CEREBRAL INFARCTION
     Dosage: 100MG TWICE PER DAY
     Route: 048
     Dates: start: 20090803, end: 20090807
  6. TAKEPRON [Suspect]
     Dosage: 30MG PER DAY
     Route: 048
     Dates: start: 20090630, end: 20090802
  7. GOODMIN [Suspect]
     Indication: INSOMNIA
     Dosage: .175MG PER DAY
     Route: 048
     Dates: end: 20090810
  8. SPIRIVA [Concomitant]
     Indication: DRUG USE FOR UNKNOWN INDICATION
     Route: 065
  9. TULOBUTEROL [Concomitant]
     Route: 065

REACTIONS (4)
  - HEPATIC FUNCTION ABNORMAL [None]
  - LUNG DISORDER [None]
  - PULMONARY FUNCTION TEST DECREASED [None]
  - PYREXIA [None]
